FAERS Safety Report 7500188-X (Version None)
Quarter: 2011Q2

REPORT INFORMATION
  Report Type: 
  Country: None (occurrence: None)
  Receive Date: 20110524
  Receipt Date: 20100414
  Transmission Date: 20111010
  Serious: No
  Sender: FDA-Public Use
  Company Number: US-NOVEN-ALL1-2010-02230

PATIENT

DRUGS (2)
  1. DAYTRANA [Suspect]
     Dosage: 20 MG, 1X/DAY:QD
     Route: 062
     Dates: start: 20100401, end: 20100401
  2. MELATONIN [Concomitant]
     Dosage: 3 MG, 1X/DAY:QD (NIGHTLY)
     Route: 048

REACTIONS (1)
  - HALLUCINATION, TACTILE [None]
